FAERS Safety Report 7590697-X (Version None)
Quarter: 2011Q3

REPORT INFORMATION
  Report Type: 
  Country: None (occurrence: None)
  Receive Date: 20110705
  Receipt Date: 20110704
  Transmission Date: 20111222
  Serious: Yes (Other)
  Sender: FDA-Public Use
  Company Number: JP-PFIZER INC-2011149090

PATIENT
  Age: 35 Year

DRUGS (1)
  1. SOLU-MEDROL [Suspect]
     Route: 042

REACTIONS (2)
  - LYMPHADENOPATHY [None]
  - PALMAR-PLANTAR ERYTHRODYSAESTHESIA SYNDROME [None]
